FAERS Safety Report 6248811-4 (Version None)
Quarter: 2009Q2

REPORT INFORMATION
  Report Type: 
  Country: None (occurrence: None)
  Receive Date: 20090629
  Receipt Date: 20090619
  Transmission Date: 20091009
  Serious: Yes (Death, Hospitalization)
  Sender: FDA-Public Use
  Company Number: JP-ASTRAZENECA-2009SE01808

PATIENT
  Sex: Male

DRUGS (2)
  1. BLOPRESS [Suspect]
     Indication: HYPERTENSION
     Route: 048
     Dates: start: 20070413, end: 20090411
  2. PANALDINE [Suspect]
     Route: 048
     Dates: end: 20090411

REACTIONS (2)
  - INTERSTITIAL LUNG DISEASE [None]
  - PYREXIA [None]
